FAERS Safety Report 22859503 (Version 3)
Quarter: 2023Q4

REPORT INFORMATION
  Report Type: Other
  Country: US (occurrence: None)
  Receive Date: 20230824
  Receipt Date: 20231208
  Transmission Date: 20240110
  Serious: Yes (Other)
  Sender: FDA-Public Use
  Company Number: US-ROCHE-3409893

PATIENT
  Age: 53 Year
  Sex: Female

DRUGS (24)
  1. XOLAIR [Suspect]
     Active Substance: OMALIZUMAB
     Indication: Tracheostomy
     Route: 058
     Dates: start: 20230824
  2. XOLAIR [Suspect]
     Active Substance: OMALIZUMAB
  3. XOLAIR [Suspect]
     Active Substance: OMALIZUMAB
  4. XOLAIR [Suspect]
     Active Substance: OMALIZUMAB
     Indication: Chronic spontaneous urticaria
     Route: 058
     Dates: start: 20230111
  5. XOLAIR [Suspect]
     Active Substance: OMALIZUMAB
  6. XOLAIR [Suspect]
     Active Substance: OMALIZUMAB
  7. PULMICORT TURBUHALER [Concomitant]
     Active Substance: BUDESONIDE
     Dosage: 0.5 MG/2ML, USE ONE AMPULE VIA NEBULIZER
     Dates: start: 20230908
  8. ZYRTEC [Concomitant]
     Active Substance: CETIRIZINE HYDROCHLORIDE
     Route: 048
     Dates: start: 20210310
  9. BENADRYL [Concomitant]
     Active Substance: DIPHENHYDRAMINE HYDROCHLORIDE
     Dosage: TAKE 2 CAPS BY MOUTH EVERY4 HOURS
     Route: 048
  10. SPECTAZOLE [Concomitant]
     Active Substance: ECONAZOLE NITRATE
     Dosage: APPLY 1 APPLICATION TO AFFECTED AREA TWICE DAILY
     Route: 061
     Dates: start: 20200520
  11. EPINEPHRINE [Concomitant]
     Active Substance: EPINEPHRINE
     Dosage: INJECT 0.3 MG IN MUSCLE AS NEEDED.
     Route: 030
  12. PEPCID [Concomitant]
     Active Substance: FAMOTIDINE
     Route: 048
  13. FLOVENT HFA [Concomitant]
     Active Substance: FLUTICASONE PROPIONATE
     Dosage: INHALE 2 PUFF IN LUNGS TWICE DAILY RINSE MOUTH AFTER EACH USE
     Dates: start: 20230817
  14. GABAPENTIN [Concomitant]
     Active Substance: GABAPENTIN
     Route: 048
  15. ATROVENT [Concomitant]
     Active Substance: IPRATROPIUM BROMIDE
     Dates: start: 20230908
  16. XOPENEX [Concomitant]
     Active Substance: LEVALBUTEROL HYDROCHLORIDE
     Dosage: INHALE 3 ML (0.63 MG TOTAL) AS INSTRUCTED THREE TIMES DAILY.
  17. SYNTHROID [Concomitant]
     Active Substance: LEVOTHYROXINE SODIUM
     Dosage: TAKE 1 TABLET BY MOUTH DAILY BEFORE BREAKFAST.
     Dates: start: 20230601
  18. LINZESS [Concomitant]
     Active Substance: LINACLOTIDE
     Dosage: TAKE 1 CAP BY MOUTH DAILY BEFORE BREAKFAST
     Route: 048
     Dates: start: 20191219
  19. VITAMINS [Concomitant]
     Active Substance: VITAMINS
     Dosage: TAKE ONE TABLET BY MOUTH EVERY MORNING
     Route: 048
  20. BACTROBAN [Concomitant]
     Active Substance: MUPIROCIN CALCIUM
     Dosage: APPLY TO AFFECTED AREA DAILY
     Route: 061
     Dates: start: 20220420
  21. RACEPINEPHRINE [Concomitant]
     Active Substance: RACEPINEPHRINE
     Dosage: INHALE 0.5 ML IN LUNGS AS NEEDED
  22. MIRALAX [Concomitant]
     Active Substance: POLYETHYLENE GLYCOL 3350
     Dosage: TAKE 17 G BY MOUTH TWICE DAILY AS NEEDED
     Route: 048
  23. ALDACTONE [Concomitant]
     Active Substance: SPIRONOLACTONE
     Dosage: TAKE 1 TAB BY MOUTH DAILY AS NEEDED
     Route: 048
     Dates: start: 20220726
  24. NASACORT AQ [Concomitant]
     Active Substance: TRIAMCINOLONE ACETONIDE
     Dosage: 2 SPRAY IN BOTH NOSTRILS TWICE DAILY

REACTIONS (2)
  - Anaphylactic shock [Unknown]
  - Off label use [Unknown]
